FAERS Safety Report 7465628-3 (Version None)
Quarter: 2011Q2

REPORT INFORMATION
  Report Type: 
  Country: None (occurrence: None)
  Receive Date: 20110509
  Receipt Date: 20110411
  Transmission Date: 20111010
  Serious: No
  Sender: FDA-Public Use
  Company Number: US-TYCO HEALTHCARE/MALLINCKRODT-T201100754

PATIENT
  Sex: Female

DRUGS (1)
  1. PENNSAID [Suspect]
     Indication: ARTHRALGIA
     Dosage: 40 GTT, UNK, TO KNEE
     Route: 061
     Dates: start: 20110301, end: 20110301

REACTIONS (2)
  - LIP SWELLING [None]
  - SWELLING FACE [None]
